FAERS Safety Report 6259395-9 (Version None)
Quarter: 2009Q3

REPORT INFORMATION
  Report Type: 
  Country: None (occurrence: None)
  Receive Date: 20090706
  Receipt Date: 20090622
  Transmission Date: 20100115
  Serious: Yes (Other)
  Sender: FDA-Public Use
  Company Number: 2009-199333-NL

PATIENT
  Age: 20 Year
  Weight: 60 kg

DRUGS (1)
  1. IMPLANON [Suspect]
     Indication: CONTRACEPTION

REACTIONS (6)
  - ALOPECIA [None]
  - DISTURBANCE IN ATTENTION [None]
  - HYPERTENSION [None]
  - NEPHROLITHIASIS [None]
  - RENAL DISORDER [None]
  - WEIGHT INCREASED [None]
